FAERS Safety Report 8950359 (Version 1)
Quarter: 2012Q4

REPORT INFORMATION
  Report Type: 
  Country: US (occurrence: US)
  Receive Date: 20121207
  Receipt Date: 20121207
  Transmission Date: 20130627
  Serious: No
  Sender: FDA-Public Use
  Company Number: US-PFIZER INC-2012306690

PATIENT
  Age: 65 Year
  Sex: Female
  Weight: 77.1 kg

DRUGS (2)
  1. ADVIL [Suspect]
     Indication: MUSCLE PAIN
     Dosage: 200 mg, UNK
  2. ADVIL [Suspect]
     Indication: BACK PAIN

REACTIONS (2)
  - Oedema peripheral [Not Recovered/Not Resolved]
  - Hypoaesthesia [Not Recovered/Not Resolved]
